FAERS Safety Report 14138742 (Version 2)
Quarter: 2017Q4

REPORT INFORMATION
  Report Type: Spontaneous
  Country: US (occurrence: US)
  Receive Date: 20171027
  Receipt Date: 20171204
  Transmission Date: 20180321
  Serious: No
  Sender: FDA-Public Use
  Company Number: US-GE HEALTHCARE LIFE SCIENCES-2017CSU003298

PATIENT
  Age: 45 Year
  Sex: Female
  Weight: 90 kg

DRUGS (5)
  1. METOPROLOL SUCCINATE. [Concomitant]
     Active Substance: METOPROLOL SUCCINATE
     Indication: HYPERTENSION
     Dosage: 50 MG, QD
     Route: 048
  2. OMNIPAQUE [Suspect]
     Active Substance: IOHEXOL
     Indication: ABDOMINAL PAIN
     Dosage: 75 ML, SINGLE
     Route: 042
     Dates: start: 20171011, end: 20171011
  3. KLOR-CON [Concomitant]
     Active Substance: POTASSIUM CHLORIDE
     Indication: PRODUCT USED FOR UNKNOWN INDICATION
     Dosage: 10 MEQ, BID
     Route: 048
  4. LOSARTAN POTASSIUM AND HYDROCHLOROTHIAZIDE [Concomitant]
     Active Substance: HYDROCHLOROTHIAZIDE\LOSARTAN POTASSIUM
     Indication: PRODUCT USED FOR UNKNOWN INDICATION
     Dosage: 25 MG, BID
     Route: 048
  5. METFORMIN [Concomitant]
     Active Substance: METFORMIN HYDROCHLORIDE
     Indication: GLUCOSE TOLERANCE IMPAIRED
     Dosage: 500 MG, BID
     Route: 048

REACTIONS (3)
  - Pruritus [Recovered/Resolved]
  - Urticaria [Recovered/Resolved]
  - Expired product administered [Recovered/Resolved]

NARRATIVE: CASE EVENT DATE: 20171011
